FAERS Safety Report 5038779-0 (Version None)
Quarter: 2006Q2

REPORT INFORMATION
  Report Type: 
  Country: None (occurrence: None)
  Receive Date: 20060627
  Receipt Date: 20060627
  Transmission Date: 20061013
  Serious: Yes (Disabling)
  Sender: FDA-Public Use
  Company Number: None

PATIENT
  Age: 90 Year
  Sex: Male
  Weight: 71.2 kg

DRUGS (1)
  1. ESOMEPRAZOLE MAGNESIUM [Suspect]
     Indication: GASTROINTESTINAL HAEMORRHAGE
     Dosage: 40 MG 1 X PO
     Route: 048
     Dates: start: 20060626, end: 20060626

REACTIONS (4)
  - DRY SKIN [None]
  - ERYTHEMA [None]
  - PALLOR [None]
  - SKIN DISORDER [None]
